FAERS Safety Report 7925987-1 (Version None)
Quarter: 2011Q4

REPORT INFORMATION
  Report Type: 
  Country: None (occurrence: None)
  Receive Date: 20111118
  Receipt Date: 20110415
  Transmission Date: 20120403
  Serious: No
  Sender: FDA-Public Use
  Company Number: US-AMGEN-USASP2011015259

PATIENT
  Sex: Male

DRUGS (3)
  1. ENBREL [Suspect]
     Dates: start: 20040101
  2. REMICADE [Concomitant]
     Dosage: UNK
     Dates: end: 20101201
  3. ENBREL [Suspect]
     Indication: RHEUMATOID ARTHRITIS
     Dosage: 50 MG, QWK
     Dates: start: 20040101

REACTIONS (3)
  - PAIN [None]
  - GLUCOSE TOLERANCE IMPAIRED [None]
  - DIABETES MELLITUS [None]
